FAERS Safety Report 4482636-5 (Version None)
Quarter: 2004Q4

REPORT INFORMATION
  Report Type: 
  Country: None (occurrence: None)
  Receive Date: 20041022
  Receipt Date: 20040913
  Transmission Date: 20050328
  Serious: Yes (Other)
  Sender: FDA-Public Use
  Company Number: PHEH2004US09938

PATIENT
  Age: 70 Year
  Sex: Male

DRUGS (1)
  1. ZOMETA [Suspect]
     Indication: PROSTATE CANCER
     Dosage: 4 MG EVERY MONTH
     Route: 042
     Dates: start: 20020124, end: 20040723

REACTIONS (5)
  - BONE DISORDER [None]
  - GINGIVAL ULCERATION [None]
  - OSTEONECROSIS [None]
  - SWELLING FACE [None]
  - TOOTH EXTRACTION [None]
